FAERS Safety Report 12205214 (Version 1)
Quarter: 2016Q1

REPORT INFORMATION
  Report Type: Spontaneous
  Country: US (occurrence: US)
  Receive Date: 20160323
  Receipt Date: 20160323
  Transmission Date: 20160526
  Serious: Yes (Other)
  Sender: FDA-Public Use
  Company Number: US-ASTRAZENECA-2016SE29233

PATIENT
  Age: 64 Year
  Sex: Male

DRUGS (20)
  1. MULTIVITAMIN 50+ [Concomitant]
  2. BIFIDOBACTERIUM LACTIS [Concomitant]
  3. NEXIUM [Suspect]
     Active Substance: ESOMEPRAZOLE MAGNESIUM
     Indication: PRODUCT USED FOR UNKNOWN INDICATION
     Route: 048
  4. LORTAB [Concomitant]
     Active Substance: ACETAMINOPHEN\HYDROCODONE BITARTRATE
  5. IBUPROFEN. [Concomitant]
     Active Substance: IBUPROFEN
  6. VICODIN [Concomitant]
     Active Substance: ACETAMINOPHEN\HYDROCODONE BITARTRATE
  7. VITAMIN C [Concomitant]
     Active Substance: ASCORBIC ACID
  8. PROTEGRA [Concomitant]
  9. VITAMIN D3 [Concomitant]
     Active Substance: CHOLECALCIFEROL
  10. VITAMIN E [Concomitant]
     Active Substance: .ALPHA.-TOCOPHEROL
  11. CURCUMIN [Concomitant]
     Active Substance: CURCUMIN
  12. HYDROXYUREA. [Concomitant]
     Active Substance: HYDROXYUREA
  13. MAGNESIUM [Concomitant]
     Active Substance: MAGNESIUM
  14. LOTEMAX [Concomitant]
     Active Substance: LOTEPREDNOL ETABONATE
  15. RUXOLITINIB [Suspect]
     Active Substance: RUXOLITINIB
     Indication: MYELOFIBROSIS
     Route: 048
     Dates: start: 201512
  16. PREDNISOLONE. [Concomitant]
     Active Substance: PREDNISOLONE
  17. OMEGA-3 FISH OIL [Concomitant]
     Active Substance: FISH OIL\OMEGA-3 FATTY ACIDS
  18. THERATEARS [Concomitant]
     Active Substance: CARBOXYMETHYLCELLULOSE SODIUM
  19. COQ10 [Concomitant]
     Active Substance: UBIDECARENONE
  20. ASPIRIN. [Concomitant]
     Active Substance: ASPIRIN

REACTIONS (7)
  - Hypotrichosis [Unknown]
  - Furuncle [Unknown]
  - Vitamin D decreased [Unknown]
  - Diarrhoea [Unknown]
  - Cataract [Unknown]
  - Eye disorder [Unknown]
  - Infection [Unknown]
